FAERS Safety Report 24955640 (Version 1)
Quarter: 2025Q1

REPORT INFORMATION
  Report Type: Spontaneous
  Country: TW (occurrence: TW)
  Receive Date: 20250211
  Receipt Date: 20250211
  Transmission Date: 20250409
  Serious: Yes (Hospitalization, Other)
  Sender: JOHNSON AND JOHNSON
  Company Number: TW-JNJFOC-20250185624

PATIENT
  Age: 29 Year
  Sex: Male

DRUGS (2)
  1. PALIPERIDONE [Suspect]
     Active Substance: PALIPERIDONE
     Indication: Aggression
     Dosage: 1-4 MG/DAY IN THE FIRST THREE YEARS
     Route: 048
  2. PALIPERIDONE [Suspect]
     Active Substance: PALIPERIDONE
     Dosage: 1-4 MG/DAY IN THE FIRST THREE YEARS
     Route: 048

REACTIONS (4)
  - Drug ineffective [Not Recovered/Not Resolved]
  - Hallucination, auditory [Unknown]
  - Insomnia [Not Recovered/Not Resolved]
  - Off label use [Unknown]
